FAERS Safety Report 7453605-8 (Version None)
Quarter: 2011Q2

REPORT INFORMATION
  Report Type: 
  Country: None (occurrence: None)
  Receive Date: 20110502
  Receipt Date: 20110329
  Transmission Date: 20111010
  Serious: Yes (Other)
  Sender: FDA-Public Use
  Company Number: US-BAYER-2010-002523

PATIENT
  Age: 41 Year
  Sex: Female
  Weight: 78.458 kg

DRUGS (8)
  1. DROSPIRENONE AND ETHINYL ESTRADIOL [Suspect]
     Dosage: UNK
     Dates: start: 20090101
  2. DROSPIRENONE AND ETHINYL ESTRADIOL [Suspect]
     Dosage: UNK
     Dates: start: 20090101
  3. MICARDIS [Concomitant]
     Dosage: 80 MG, QD
     Route: 048
  4. ALLEGRA [Concomitant]
     Dosage: 180 MG, QD
     Route: 048
  5. JANUVIA [Concomitant]
     Dosage: UNK UNK, QD
     Route: 048
  6. YASMIN [Suspect]
     Dosage: UNK
     Dates: start: 20000203
  7. ACIPHEX [Concomitant]
     Dosage: 20 MG, UNK
     Route: 048
  8. LEVOXYL [Concomitant]
     Dosage: UNK UNK, QD
     Route: 048

REACTIONS (3)
  - CHOLECYSTITIS CHRONIC [None]
  - GALLBLADDER DISORDER [None]
  - PAIN [None]
